FAERS Safety Report 25493203 (Version 1)
Quarter: 2025Q2

REPORT INFORMATION
  Report Type: Spontaneous
  Country: IT (occurrence: IT)
  Receive Date: 20250630
  Receipt Date: 20250630
  Transmission Date: 20250717
  Serious: Yes (Other)
  Sender: SAMSUNG BIOEPIS
  Company Number: None

PATIENT
  Age: 22 Year
  Sex: Female

DRUGS (1)
  1. IMRALDI [Suspect]
     Active Substance: ADALIMUMAB
     Indication: Juvenile idiopathic arthritis
     Dosage: 40 MG SUBCUTANEOUSLY EVERY 14 DAYS;
     Route: 058

REACTIONS (3)
  - Uveitis [Not Recovered/Not Resolved]
  - Juvenile idiopathic arthritis [Unknown]
  - Product substitution issue [Unknown]
